FAERS Safety Report 5094165-9 (Version None)
Quarter: 2006Q3

REPORT INFORMATION
  Report Type: 
  Country: None (occurrence: None)
  Receive Date: 20060831
  Receipt Date: 20060821
  Transmission Date: 20061208
  Serious: Yes (Hospitalization)
  Sender: FDA-Public Use
  Company Number: PHRM2006FR02355

PATIENT
  Age: 40 Year
  Sex: Female

DRUGS (5)
  1. TRILEPTAL [Suspect]
     Dosage: 900 MG IN THE MORNING/1200 MG IN THE EVENING
     Route: 048
     Dates: start: 20010101
  2. IMPLANON [Suspect]
     Indication: CONTRACEPTION
     Dosage: UNK, UNK
     Dates: start: 20040101
  3. NEURONTIN [Concomitant]
     Route: 048
  4. URBANYL [Concomitant]
     Dosage: 5 MG, BID
     Route: 048
     Dates: start: 20010101
  5. ZOLOFT [Concomitant]
     Dosage: 1 DF, QD
     Route: 048
     Dates: start: 20060101

REACTIONS (4)
  - ABORTION INDUCED [None]
  - DRUG EXPOSURE DURING PREGNANCY [None]
  - DRUG INTERACTION INHIBITION [None]
  - UNINTENDED PREGNANCY [None]
